FAERS Safety Report 18406164 (Version 1)
Quarter: 2020Q4

REPORT INFORMATION
  Report Type: Report from Study
  Country: US (occurrence: US)
  Receive Date: 20201020
  Receipt Date: 20201020
  Transmission Date: 20210114
  Serious: Yes (Other)
  Sender: FDA-Public Use
  Company Number: US-BAYER-2020-222929

PATIENT
  Age: 55 Year
  Sex: Female
  Weight: 136.51 kg

DRUGS (3)
  1. ADEMPAS [Suspect]
     Active Substance: RIOCIGUAT
     Indication: PULMONARY ARTERIAL HYPERTENSION
     Dosage: UNK
     Dates: start: 20200207
  2. ADEMPAS [Suspect]
     Active Substance: RIOCIGUAT
     Indication: PULMONARY ARTERIAL HYPERTENSION
     Dosage: 2.5 MG, TID
     Route: 048
     Dates: start: 2020
  3. XARELTO [Suspect]
     Active Substance: RIVAROXABAN
     Dosage: UNK

REACTIONS (12)
  - Pain [None]
  - Pain in extremity [None]
  - Oxygen saturation decreased [None]
  - Rash [Not Recovered/Not Resolved]
  - Abdominal pain upper [None]
  - Memory impairment [None]
  - Skin haemorrhage [None]
  - Pruritus [None]
  - Dyspnoea [None]
  - Pneumonia [None]
  - Chest pain [None]
  - Aphasia [None]

NARRATIVE: CASE EVENT DATE: 2020
